FAERS Safety Report 25317256 (Version 1)
Quarter: 2025Q2

REPORT INFORMATION
  Report Type: Report from Study
  Country: CA (occurrence: CA)
  Receive Date: 20250515
  Receipt Date: 20250515
  Transmission Date: 20250717
  Serious: Yes (Other)
  Sender: JOHNSON AND JOHNSON
  Company Number: CA-JNJFOC-20210638533

PATIENT
  Age: 11 Year
  Sex: Male
  Weight: 32 kg

DRUGS (7)
  1. REMICADE [Suspect]
     Active Substance: INFLIXIMAB
     Indication: Crohn^s disease
     Dosage: ON 18-JUN-2021, THE PATIENT RECEIVED 8TH INFLIXIMAB, RECOMBINANT INFUSION AT DOSE OF 300 MG, EVERY 8
     Route: 041
     Dates: start: 20200520
  2. REMICADE [Suspect]
     Active Substance: INFLIXIMAB
     Dosage: MAINTENANCE DOSE/FREQUENCY
     Route: 041
     Dates: start: 20230519
  3. REMICADE [Suspect]
     Active Substance: INFLIXIMAB
     Dosage: MAINTENANCE DOSE/FREQUENCY
     Route: 041
  4. REMICADE [Suspect]
     Active Substance: INFLIXIMAB
     Route: 041
     Dates: start: 20200520
  5. REMICADE [Suspect]
     Active Substance: INFLIXIMAB
     Dosage: MAINTENANCE DOSE/FREQUENCY
     Route: 041
  6. REMICADE [Suspect]
     Active Substance: INFLIXIMAB
     Route: 041
     Dates: start: 20200520
  7. REMICADE [Suspect]
     Active Substance: INFLIXIMAB
     Route: 041

REACTIONS (2)
  - Crohn^s disease [Unknown]
  - Off label use [Unknown]

NARRATIVE: CASE EVENT DATE: 20230519
